FAERS Safety Report 23969176 (Version 8)
Quarter: 2025Q1

REPORT INFORMATION
  Report Type: Spontaneous
  Country: US (occurrence: US)
  Receive Date: 20240612
  Receipt Date: 20250220
  Transmission Date: 20250409
  Serious: Yes (Other)
  Sender: OTSUKA
  Company Number: US-OTSUKA-2023_029080

PATIENT
  Sex: Female
  Weight: 70.31 kg

DRUGS (2)
  1. REXULTI [Suspect]
     Active Substance: BREXPIPRAZOLE
     Indication: Bipolar disorder
     Dosage: 2 MG, QD (AT BEDTIME)
     Route: 065
     Dates: start: 2019
  2. LAMOTRIGINE [Concomitant]
     Active Substance: LAMOTRIGINE
     Indication: Product used for unknown indication
     Route: 065

REACTIONS (18)
  - Dyspnoea [Unknown]
  - Suicidal ideation [Unknown]
  - Influenza like illness [Recovered/Resolved]
  - Influenza like illness [Unknown]
  - Paranasal sinus discomfort [Unknown]
  - Diplopia [Unknown]
  - Withdrawal syndrome [Not Recovered/Not Resolved]
  - Panic reaction [Unknown]
  - Pyrexia [Unknown]
  - Headache [Recovering/Resolving]
  - Anxiety [Recovering/Resolving]
  - Weight increased [Unknown]
  - Product colour issue [Unknown]
  - Product use in unapproved indication [Unknown]
  - Insurance issue [Unknown]
  - Expired product administered [Unknown]
  - Inability to afford medication [Unknown]
  - Product formulation issue [Unknown]
